FAERS Safety Report 10362538 (Version 1)
Quarter: 2014Q3

REPORT INFORMATION
  Report Type: Spontaneous
  Country: SE (occurrence: SE)
  Receive Date: 20140805
  Receipt Date: 20140805
  Transmission Date: 20150326
  Serious: Yes (Death, Other)
  Sender: FDA-Public Use
  Company Number: PHHY2014SE094317

PATIENT
  Age: 67 Year
  Sex: Male

DRUGS (9)
  1. TASIGNA [Suspect]
     Active Substance: NILOTINIB
     Indication: CHRONIC MYELOID LEUKAEMIA
     Dosage: 300 MG, BID
     Route: 048
     Dates: start: 20130227, end: 20140117
  2. ZOPICLONE [Concomitant]
     Active Substance: ZOPICLONE
  3. SAROTEN [Concomitant]
     Active Substance: AMITRIPTYLINE
  4. SELOKEN [Concomitant]
     Active Substance: METOPROLOL
  5. ORALOVITE [Concomitant]
  6. ALVEDON [Concomitant]
     Active Substance: ACETAMINOPHEN
  7. FOLACIN [Concomitant]
     Active Substance: FOLIC ACID
  8. ENALAPRIL [Concomitant]
     Active Substance: ENALAPRIL
  9. OMEPRAZOLE. [Concomitant]
     Active Substance: OMEPRAZOLE

REACTIONS (4)
  - Gangrene [Unknown]
  - Death [Fatal]
  - Arteriosclerosis [Unknown]
  - Cardiovascular insufficiency [Unknown]

NARRATIVE: CASE EVENT DATE: 201309
